FAERS Safety Report 6225841-X (Version None)
Quarter: 2009Q2

REPORT INFORMATION
  Report Type: 
  Country: None (occurrence: None)
  Receive Date: 20090612
  Receipt Date: 20090501
  Transmission Date: 20091009
  Serious: No
  Sender: FDA-Public Use
  Company Number: US-ABBOTT-09P-163-0571273-00

PATIENT
  Sex: Female

DRUGS (6)
  1. HUMIRA [Suspect]
     Indication: CROHN'S DISEASE
     Dosage: 4 PENS
     Dates: start: 20090413
  2. HUMIRA [Suspect]
     Indication: ILEITIS
     Dosage: 2 PENS
  3. HUMIRA [Suspect]
  4. XANAX [Concomitant]
     Indication: DRUG USE FOR UNKNOWN INDICATION
  5. DARVOCET-N 100 [Concomitant]
     Indication: DRUG USE FOR UNKNOWN INDICATION
  6. PENTASA [Concomitant]
     Indication: DRUG USE FOR UNKNOWN INDICATION

REACTIONS (2)
  - BREAST MASS [None]
  - BREAST PAIN [None]
